FAERS Safety Report 20501610 (Version 1)
Quarter: 2022Q1

REPORT INFORMATION
  Report Type: Spontaneous
  Country: ZA (occurrence: ZA)
  Receive Date: 20220222
  Receipt Date: 20220222
  Transmission Date: 20220423
  Serious: Yes (Other)
  Sender: FDA-Public Use
  Company Number: ZA-PFIZER INC-202200258430

PATIENT
  Age: 60 Year
  Sex: Female
  Weight: 102 kg

DRUGS (2)
  1. METHOTREXATE [Suspect]
     Active Substance: METHOTREXATE
     Dosage: 20 MG, WEEKLY
     Dates: start: 2006
  2. SULFASALAZINE [Concomitant]
     Active Substance: SULFASALAZINE
     Dosage: 1.5 G, 2X/DAY
     Dates: start: 2006

REACTIONS (7)
  - Urinary bladder suspension [Unknown]
  - Gastrooesophageal reflux disease [Unknown]
  - Obesity [Unknown]
  - Depression [Unknown]
  - Hypertension [Unknown]
  - Cystitis [Unknown]
  - Condition aggravated [Unknown]
